FAERS Safety Report 7657410-9 (Version None)
Quarter: 2011Q3

REPORT INFORMATION
  Report Type: 
  Country: None (occurrence: None)
  Receive Date: 20110804
  Receipt Date: 20110126
  Transmission Date: 20111222
  Serious: Yes (Death)
  Sender: FDA-Public Use
  Company Number: PE-ASTRAZENECA-2011SE45198

PATIENT
  Age: 83 Year
  Sex: Male

DRUGS (1)
  1. ZOLADEX [Suspect]
     Indication: PROSTATE CANCER
     Route: 058
     Dates: start: 20090517

REACTIONS (1)
  - DEATH [None]
